FAERS Safety Report 21024265 (Version 1)
Quarter: 2022Q2

REPORT INFORMATION
  Report Type: Spontaneous
  Country: US (occurrence: US)
  Receive Date: 20220629
  Receipt Date: 20220629
  Transmission Date: 20220720
  Serious: No
  Sender: FDA-Public Use
  Company Number: US-MYLANLABS-2022M1047549

PATIENT
  Age: 68 Year
  Sex: Female
  Weight: 56.7 kg

DRUGS (2)
  1. WIXELA INHUB [Suspect]
     Active Substance: FLUTICASONE PROPIONATE\SALMETEROL XINAFOATE
     Indication: Cough
     Dosage: UNK UNK, QD (250/50 MICROGRAM MAXIMUM OF 2 PUFFS IN A DAY)
     Route: 055
  2. WIXELA INHUB [Suspect]
     Active Substance: FLUTICASONE PROPIONATE\SALMETEROL XINAFOATE
     Indication: Hypersensitivity
     Dosage: UNK UNK, QD (250/50 MICROGRAM MAXIMUM OF 2 PUFFS IN A DAY)/50 MICROGRAM MAXIMUM OF 2 PUFFS IN A DAY)
     Route: 055

REACTIONS (1)
  - Drug ineffective [Unknown]

NARRATIVE: CASE EVENT DATE: 20220613
